FAERS Safety Report 11809890 (Version 1)
Quarter: 2015Q4

REPORT INFORMATION
  Report Type: Report from Study
  Country: US (occurrence: US)
  Receive Date: 20151208
  Receipt Date: 20151208
  Transmission Date: 20160305
  Serious: Yes (Other)
  Sender: FDA-Public Use
  Company Number: US-BRISTOL-MYERS SQUIBB COMPANY-12254025

PATIENT
  Age: 30 Year
  Sex: Female

DRUGS (3)
  1. EFAVIRENZ [Suspect]
     Active Substance: EFAVIRENZ
     Indication: HIV INFECTION
     Dosage: THERAPY WAS ONGOING AT CONCEPTION.
     Route: 048
     Dates: start: 20010912, end: 20020722
  2. EPIVIR [Suspect]
     Active Substance: LAMIVUDINE
     Indication: HIV INFECTION
     Dosage: THERAPY WAS ONGOING AT CONCEPTION.
     Route: 048
     Dates: start: 20010912, end: 20020722
  3. ZIAGEN [Suspect]
     Active Substance: ABACAVIR SULFATE
     Indication: HIV INFECTION
     Dosage: THERAPY WAS ONGOING AT CONCEPTION.
     Route: 048
     Dates: start: 20010912, end: 20020722

REACTIONS (4)
  - Abortion induced [Unknown]
  - Thrombocytopenia [Unknown]
  - Vaginal haemorrhage [Unknown]
  - Ectopic pregnancy [Unknown]

NARRATIVE: CASE EVENT DATE: 2002
